FAERS Safety Report 4752341-6 (Version None)
Quarter: 2005Q3

REPORT INFORMATION
  Report Type: 
  Country: None (occurrence: None)
  Receive Date: 20050825
  Receipt Date: 20050812
  Transmission Date: 20060218
  Serious: Yes (Life-Threatening)
  Sender: FDA-Public Use
  Company Number: FR-GLAXOSMITHKLINE-B0391228A

PATIENT
  Age: 63 Year
  Sex: Female
  Weight: 93 kg

DRUGS (5)
  1. ONDANSETRON [Suspect]
     Indication: NAUSEA
     Route: 042
     Dates: start: 20050524, end: 20050701
  2. ESIDRIX [Suspect]
     Dosage: 25MG PER DAY
     Route: 048
     Dates: end: 20050720
  3. TENORDATE [Suspect]
     Route: 048
     Dates: end: 20050711
  4. ETHYOL [Suspect]
     Dosage: 400MG PER DAY
     Route: 042
     Dates: start: 20050524, end: 20050701
  5. METHYLPREDNISOLONE [Suspect]
     Route: 042
     Dates: start: 20050524, end: 20050701

REACTIONS (5)
  - CONJUNCTIVITIS [None]
  - DERMATITIS BULLOUS [None]
  - PRURITUS [None]
  - RASH ERYTHEMATOUS [None]
  - SKIN DISORDER [None]
